FAERS Safety Report 9215519 (Version 1)
Quarter: 2013Q2

REPORT INFORMATION
  Report Type: Spontaneous
  Country: US (occurrence: US)
  Receive Date: 20130406
  Receipt Date: 20130406
  Transmission Date: 20140414
  Serious: Yes (Other)
  Sender: FDA-Public Use
  Company Number: US-B.I. PHARMACEUTICALS,INC./RIDGEFIELD-2013-BI-08885BP

PATIENT
  Sex: Male

DRUGS (2)
  1. PRADAXA [Suspect]
     Route: 048
  2. HEPARIN [Concomitant]
     Indication: PROPHYLAXIS

REACTIONS (1)
  - Transient ischaemic attack [Unknown]
